FAERS Safety Report 5206004-3 (Version None)
Quarter: 2007Q1

REPORT INFORMATION
  Report Type: 
  Country: None (occurrence: None)
  Receive Date: 20070111
  Receipt Date: 20070103
  Transmission Date: 20070707
  Serious: Yes (Other)
  Sender: FDA-Public Use
  Company Number: US-ROCHE-473813

PATIENT
  Age: 36 Year
  Weight: 54.4 kg

DRUGS (1)
  1. PEGASYS [Suspect]
     Route: 058
     Dates: start: 20060626, end: 20061212

REACTIONS (3)
  - ALOPECIA [None]
  - CONVULSION [None]
  - SKIN DISORDER [None]
